FAERS Safety Report 5762018-6 (Version None)
Quarter: 2008Q2

REPORT INFORMATION
  Report Type: 
  Country: None (occurrence: None)
  Receive Date: 20080603
  Receipt Date: 20080519
  Transmission Date: 20081010
  Serious: Yes (Other)
  Sender: FDA-Public Use
  Company Number: 230176J08GBR

PATIENT
  Sex: Female

DRUGS (5)
  1. REBIF [Suspect]
     Dates: end: 20080317
  2. GABAPENTIN [Concomitant]
  3. TRAMADOL HCL [Concomitant]
  4. BACLOFEN [Concomitant]
  5. PSYCHOSTIMULANTS AND NOOTROPICS [Concomitant]

REACTIONS (6)
  - MULTIPLE SCLEROSIS RELAPSE [None]
  - MUSCLE SPASMS [None]
  - OPTIC NEURITIS [None]
  - SCIATICA [None]
  - SKIN INFLAMMATION [None]
  - SPINAL FRACTURE [None]
